FAERS Safety Report 19775610 (Version 1)
Quarter: 2021Q3

REPORT INFORMATION
  Report Type: Spontaneous
  Country: BE (occurrence: BE)
  Receive Date: 20210901
  Receipt Date: 20210901
  Transmission Date: 20211014
  Serious: Yes (Life-Threatening, Hospitalization, Other)
  Sender: FDA-Public Use
  Company Number: BE-LUPIN PHARMACEUTICALS INC.-2021-16129

PATIENT
  Age: 23 Year
  Sex: Female

DRUGS (1)
  1. METFORMIN [Suspect]
     Active Substance: METFORMIN HYDROCHLORIDE
     Indication: TYPE 2 DIABETES MELLITUS
     Dosage: 64 DOSAGE FORM (PILLS)
     Route: 048

REACTIONS (10)
  - Hypotension [Recovering/Resolving]
  - Shock [Recovering/Resolving]
  - Tachypnoea [Unknown]
  - Hypoglycaemia [Recovered/Resolved]
  - Suicide attempt [Unknown]
  - Lactic acidosis [Recovered/Resolved]
  - Anxiety [Unknown]
  - Intentional overdose [Unknown]
  - Abdominal pain [Unknown]
  - Toxicity to various agents [Unknown]
